FAERS Safety Report 21290671 (Version 1)
Quarter: 2022Q3

REPORT INFORMATION
  Report Type: Spontaneous
  Country: US (occurrence: US)
  Receive Date: 20220903
  Receipt Date: 20220903
  Transmission Date: 20221026
  Serious: No
  Sender: FDA-Public Use
  Company Number: US-NOVARTISTESTPH-NVSC2022US196393

PATIENT
  Sex: Female

DRUGS (1)
  1. RECLAST [Suspect]
     Active Substance: ZOLEDRONIC ACID
     Indication: Osteoporosis
     Dosage: UNK
     Route: 042
     Dates: start: 20220819

REACTIONS (7)
  - Illness [Unknown]
  - Pyrexia [Unknown]
  - Bone pain [Unknown]
  - Myalgia [Unknown]
  - Arthralgia [Unknown]
  - Headache [Unknown]
  - Pain in extremity [Unknown]
